FAERS Safety Report 15196995 (Version 1)
Quarter: 2018Q3

REPORT INFORMATION
  Report Type: Spontaneous
  Country: GB (occurrence: GB)
  Receive Date: 20180725
  Receipt Date: 20180725
  Transmission Date: 20181010
  Serious: Yes (Life-Threatening, Hospitalization, Other)
  Sender: FDA-Public Use
  Company Number: GB-TEVA-2018-GB-930589

PATIENT
  Age: 75 Year
  Sex: Male

DRUGS (8)
  1. DOXAZOSIN MESYLATE. [Concomitant]
     Active Substance: DOXAZOSIN MESYLATE
  2. ALLOPURINOL. [Concomitant]
     Active Substance: ALLOPURINOL
  3. PIOGLITAZONE. [Suspect]
     Active Substance: PIOGLITAZONE
     Indication: TYPE 2 DIABETES MELLITUS
     Dosage: 45 MILLIGRAM DAILY;
     Route: 065
  4. CITALOPRAM [Concomitant]
     Active Substance: CITALOPRAM HYDROBROMIDE
  5. METFORMIN HYDROCHLORIDE. [Concomitant]
     Active Substance: METFORMIN HYDROCHLORIDE
  6. HUMULIN NOS [Concomitant]
     Active Substance: INSULIN HUMAN
  7. LISINOPRIL. [Concomitant]
     Active Substance: LISINOPRIL
  8. EZETIMIBE. [Concomitant]
     Active Substance: EZETIMIBE

REACTIONS (5)
  - Dyspnoea [Recovering/Resolving]
  - Oedema peripheral [Recovering/Resolving]
  - Cardiac failure [Recovering/Resolving]
  - Scrotal oedema [Recovering/Resolving]
  - Localised oedema [Recovering/Resolving]

NARRATIVE: CASE EVENT DATE: 20180616
